FAERS Safety Report 10178199 (Version 1)
Quarter: 2014Q2

REPORT INFORMATION
  Report Type: Spontaneous
  Country: US (occurrence: US)
  Receive Date: 20140519
  Receipt Date: 20140519
  Transmission Date: 20141212
  Serious: Yes (Other)
  Sender: FDA-Public Use
  Company Number: US-009507513-1405USA008132

PATIENT
  Age: 60 Year
  Sex: Female

DRUGS (7)
  1. REMERON [Suspect]
     Indication: DEPRESSION
     Dosage: UNK
     Route: 048
  2. TUMS [Concomitant]
     Indication: ABDOMINAL DISCOMFORT
  3. FLEXERIL [Concomitant]
     Indication: MUSCLE RELAXANT THERAPY
  4. PRAVACHOL [Concomitant]
     Indication: BLOOD CHOLESTEROL ABNORMAL
  5. VICODIN [Concomitant]
     Indication: PAIN
  6. CYMBALTA [Concomitant]
     Indication: DEPRESSION
  7. NEURONTIN [Concomitant]
     Indication: NEUROPATHY PERIPHERAL

REACTIONS (9)
  - Neoplasm [Recovering/Resolving]
  - Insomnia [Unknown]
  - Muscle spasms [Unknown]
  - Disturbance in attention [Unknown]
  - Abdominal pain upper [Unknown]
  - Headache [Unknown]
  - Anxiety [Unknown]
  - Tremor [Unknown]
  - Dizziness [Unknown]
